FAERS Safety Report 5256540-9 (Version None)
Quarter: 2007Q1

REPORT INFORMATION
  Report Type: 
  Country: None (occurrence: None)
  Receive Date: 20070306
  Receipt Date: 20070302
  Transmission Date: 20070707
  Serious: Yes (Hospitalization)
  Sender: FDA-Public Use
  Company Number: HR-MERCK-0703HUN00003

PATIENT
  Age: 37 Year
  Sex: Female

DRUGS (1)
  1. ALDOMET [Suspect]
     Indication: PREGNANCY INDUCED HYPERTENSION
     Route: 048
     Dates: start: 20050901, end: 20060701

REACTIONS (1)
  - ANAEMIA [None]
